FAERS Safety Report 9418349 (Version 8)
Quarter: 2015Q3

REPORT INFORMATION
  Report Type: Spontaneous
  Country: CA (occurrence: CA)
  Receive Date: 20130725
  Receipt Date: 20150727
  Transmission Date: 20151125
  Serious: Yes (Other)
  Sender: FDA-Public Use
  Company Number: CA-ROCHE-1252511

PATIENT
  Age: 60 Year
  Sex: Male

DRUGS (5)
  1. XOLAIR [Suspect]
     Active Substance: OMALIZUMAB
     Route: 058
     Dates: start: 20130606
  2. BIAXIN [Concomitant]
     Active Substance: CLARITHROMYCIN
     Route: 065
     Dates: end: 20130901
  3. ALVESCO [Concomitant]
     Active Substance: CICLESONIDE
  4. XOLAIR [Suspect]
     Active Substance: OMALIZUMAB
     Indication: ASTHMA
     Route: 058
     Dates: start: 20121102
  5. VENTOLINE [Concomitant]
     Active Substance: ALBUTEROL

REACTIONS (8)
  - Respiratory tract infection [Recovering/Resolving]
  - Pyrexia [Unknown]
  - Herpes zoster [Unknown]
  - Dysphonia [Unknown]
  - Nasopharyngitis [Unknown]
  - Lung infection [Unknown]
  - Dyspnoea [Recovering/Resolving]
  - Mycobacterial infection [Unknown]

NARRATIVE: CASE EVENT DATE: 201212
